FAERS Safety Report 9526560 (Version 1)
Quarter: 2013Q3

REPORT INFORMATION
  Report Type: Spontaneous
  Country: US (occurrence: US)
  Receive Date: 20130916
  Receipt Date: 20130916
  Transmission Date: 20140515
  Serious: No
  Sender: FDA-Public Use
  Company Number: US-PFIZER INC-2013264737

PATIENT
  Age: 33 Year
  Sex: Female
  Weight: 107 kg

DRUGS (6)
  1. GEODON [Suspect]
     Indication: BIPOLAR DISORDER
     Dosage: 300 MG (TWO OF 150MG AT NIGHT), DAILY
     Dates: start: 2004, end: 2010
  2. GEODON [Suspect]
     Indication: PSYCHOTIC DISORDER
  3. BENZATROPINE MESILATE [Suspect]
     Indication: EXTRAPYRAMIDAL DISORDER
     Dosage: 2 MG, 2X/DAY
     Dates: start: 201302
  4. HALDOL [Suspect]
     Indication: PSYCHOTIC DISORDER
     Dosage: 5 MG, 2X/DAY
     Dates: start: 201302
  5. LITHIUM CARBONATE [Suspect]
     Indication: PSYCHOTIC DISORDER
     Dosage: 300MG IN MORNING AND 600MG AT NIGHT
     Dates: start: 201302
  6. TRILEPTAL [Suspect]
     Indication: AFFECTIVE DISORDER
     Dosage: 600 MG, 2X/DAY
     Dates: start: 201302

REACTIONS (8)
  - Drug ineffective [Unknown]
  - Fatigue [Not Recovered/Not Resolved]
  - Tinnitus [Not Recovered/Not Resolved]
  - Insomnia [Not Recovered/Not Resolved]
  - Dyspepsia [Not Recovered/Not Resolved]
  - Abdominal pain upper [Not Recovered/Not Resolved]
  - Gastric disorder [Not Recovered/Not Resolved]
  - Gastric cyst [Not Recovered/Not Resolved]
